FAERS Safety Report 7140964-9 (Version None)
Quarter: 2010Q4

REPORT INFORMATION
  Report Type: 
  Country: None (occurrence: None)
  Receive Date: 20101122
  Receipt Date: 20101109
  Transmission Date: 20110411
  Serious: Yes (Hospitalization, Other)
  Sender: FDA-Public Use
  Company Number: 020579

PATIENT
  Sex: Female
  Weight: 101.8 kg

DRUGS (29)
  1. ROTIGOTINE [Suspect]
     Indication: PARKINSON'S DISEASE
     Dosage: (6 MG QD TRANSDERMAL), (6 MG QD TRANSDERMAL)
     Route: 062
     Dates: start: 20090928, end: 20091020
  2. ROTIGOTINE [Suspect]
     Indication: PARKINSON'S DISEASE
     Dosage: (6 MG QD TRANSDERMAL), (6 MG QD TRANSDERMAL)
     Route: 062
     Dates: start: 20091123
  3. CARBIDOPA + LEVODOPA [Concomitant]
  4. PARCOPA [Concomitant]
  5. SINEMET [Concomitant]
  6. PRIMIDONE [Concomitant]
  7. AZILECT [Concomitant]
  8. COMTAN [Concomitant]
  9. VITAMIN B-12 [Concomitant]
  10. OXYBUTYNIN [Concomitant]
  11. CLONAZEPAM [Concomitant]
  12. TRAZODONE HCL [Concomitant]
  13. WELLBUTRIN [Concomitant]
  14. GLIPIZIDE [Concomitant]
  15. FERROUS SULFATE [Concomitant]
  16. EXELON [Concomitant]
  17. ASPIRIN [Concomitant]
  18. LIPITOR [Concomitant]
  19. COREG [Concomitant]
  20. PLAVIX [Concomitant]
  21. SENNA /00142201/ [Concomitant]
  22. DAILY VITAMINS [Concomitant]
  23. DOMPERIDONE [Concomitant]
  24. LORAZEPAM [Concomitant]
  25. NOVOLOG [Concomitant]
  26. LANTUS [Concomitant]
  27. KLOR-CON [Concomitant]
  28. LASIX [Concomitant]
  29. COMBIVENT [Concomitant]

REACTIONS (7)
  - ANGINA PECTORIS [None]
  - CORONARY ARTERY OCCLUSION [None]
  - CORONARY ARTERY STENOSIS [None]
  - EJECTION FRACTION DECREASED [None]
  - HAEMATOMA [None]
  - HAEMOGLOBIN DECREASED [None]
  - PRESYNCOPE [None]
